FAERS Safety Report 4951691-8 (Version None)
Quarter: 2006Q1

REPORT INFORMATION
  Report Type: 
  Country: None (occurrence: None)
  Receive Date: 20060323
  Receipt Date: 20060313
  Transmission Date: 20060701
  Serious: Yes (Other)
  Sender: FDA-Public Use
  Company Number: GB-JNJFOC-20060303778

PATIENT
  Sex: Female
  Weight: 63.5 kg

DRUGS (4)
  1. RISPERDAL [Suspect]
     Indication: AGITATION
     Route: 065
  2. VENLAFAXINE HCL [Suspect]
     Route: 065
  3. VENLAFAXINE HCL [Suspect]
     Indication: DEPRESSION
     Route: 065
  4. HUMALOG MIXED [Concomitant]
     Dosage: 28 UNITS AM 24 UNITS NOCTE
     Route: 065

REACTIONS (5)
  - DYSPHONIA [None]
  - DYSTONIA [None]
  - GAIT DISTURBANCE [None]
  - MEMORY IMPAIRMENT [None]
  - VISION BLURRED [None]
